FAERS Safety Report 25865894 (Version 1)
Quarter: 2025Q3

REPORT INFORMATION
  Report Type: Spontaneous
  Country: NZ (occurrence: NZ)
  Receive Date: 20250930
  Receipt Date: 20250930
  Transmission Date: 20251021
  Serious: Yes (Other)
  Sender: AMERICAN REGENT
  Company Number: NZ-AMERICAN REGENT INC-2025003625

PATIENT
  Age: 36 Year
  Sex: Female

DRUGS (1)
  1. FERINJECT [Suspect]
     Active Substance: FERRIC CARBOXYMALTOSE
     Indication: Blood iron decreased
     Route: 042
     Dates: start: 20250226, end: 20250226

REACTIONS (2)
  - Foetal death [Not Recovered/Not Resolved]
  - Maternal exposure during pregnancy [Not Recovered/Not Resolved]

NARRATIVE: CASE EVENT DATE: 20250226
